FAERS Safety Report 9935091 (Version 2)
Quarter: 2014Q1

REPORT INFORMATION
  Report Type: Spontaneous
  Country: CA (occurrence: CA)
  Receive Date: 20140228
  Receipt Date: 20140228
  Transmission Date: 20141002
  Serious: Yes (Disabling)
  Sender: FDA-Public Use
  Company Number: CA-PFIZER INC-2013365018

PATIENT
  Age: 88 Year
  Sex: Female
  Weight: 66 kg

DRUGS (7)
  1. TOVIAZ [Suspect]
     Indication: HYPERTONIC BLADDER
     Dosage: 4 MG, 1X/DAY
     Route: 048
     Dates: end: 20130506
  2. TOVIAZ [Suspect]
     Dosage: 8 MG, 1X/DAY
     Route: 048
     Dates: start: 20130507, end: 20131022
  3. COUMADIN [Concomitant]
     Dosage: ALTERNATE 3 AND 4 MG/1X/DAY
  4. SOTALOL [Concomitant]
     Dosage: 50 MG, 2X/DAY
  5. SYNTHROID [Concomitant]
     Dosage: 125 UG, 2X/DAY
  6. HYDROCHLOROTHIAZIDE [Concomitant]
     Dosage: 125 MG, 1X/DAY
  7. CELEBREX [Concomitant]
     Dosage: 200 MG, 2X/DAY

REACTIONS (6)
  - Dizziness [Unknown]
  - Balance disorder [Not Recovered/Not Resolved]
  - Coordination abnormal [Not Recovered/Not Resolved]
  - Raynaud^s phenomenon [Not Recovered/Not Resolved]
  - Cognitive disorder [Unknown]
  - Nausea [Unknown]
